FAERS Safety Report 8995334 (Version 1)
Quarter: 2013Q1

REPORT INFORMATION
  Report Type: Spontaneous
  Country: CH (occurrence: CH)
  Receive Date: 20130103
  Receipt Date: 20130103
  Transmission Date: 20140127
  Serious: Yes (Hospitalization)
  Sender: FDA-Public Use
  Company Number: CH-ROCHE-1175018

PATIENT
  Age: 49 Year
  Sex: Female

DRUGS (16)
  1. MABTHERA [Suspect]
     Indication: PRODUCT USED FOR UNKNOWN INDICATION
     Route: 065
     Dates: start: 20070808, end: 20070815
  2. MABTHERA [Suspect]
     Route: 065
     Dates: start: 20070822, end: 20070827
  3. MABTHERA [Suspect]
     Route: 065
     Dates: start: 20080401, end: 20090831
  4. PREDNISONE [Suspect]
     Indication: PRODUCT USED FOR UNKNOWN INDICATION
     Route: 065
     Dates: start: 2000
  5. IMUREK [Suspect]
     Indication: PRODUCT USED FOR UNKNOWN INDICATION
     Route: 065
     Dates: start: 200707, end: 200802
  6. SANDIMMUN [Suspect]
     Indication: PRODUCT USED FOR UNKNOWN INDICATION
     Route: 065
     Dates: end: 200707
  7. SANDIMMUN [Suspect]
     Route: 065
     Dates: start: 200803
  8. PLAQUENIL [Concomitant]
     Route: 065
     Dates: start: 2000
  9. ACTONEL [Concomitant]
     Route: 065
  10. NEXIUM [Concomitant]
     Route: 065
  11. SINTROM [Concomitant]
  12. MARCOUMAR [Concomitant]
     Route: 065
  13. ENALAPRIL [Concomitant]
     Route: 065
     Dates: start: 2008
  14. ESIDREX [Concomitant]
     Route: 065
  15. CALCIMAGON-D3 [Concomitant]
     Route: 065
  16. PLAQUENIL [Concomitant]

REACTIONS (2)
  - Bronchopneumonia [Recovered/Resolved]
  - Pneumonia staphylococcal [Recovered/Resolved]
